FAERS Safety Report 18873950 (Version 2)
Quarter: 2021Q1

REPORT INFORMATION
  Report Type: Spontaneous
  Country: US (occurrence: US)
  Receive Date: 20210210
  Receipt Date: 20210219
  Transmission Date: 20210420
  Serious: Yes (Death, Life-Threatening, Hospitalization, Other)
  Sender: FDA-Public Use
  Company Number: US-AMGEN-USASP2021018598

PATIENT

DRUGS (2)
  1. NEUPOGEN [Suspect]
     Active Substance: FILGRASTIM
     Indication: PROPHYLAXIS
     Dosage: 300 TO 600 MICROGRAMS PER DAY (QD)
     Route: 065
  2. 5?FLUOROURACIL [FLUOROURACIL] [Suspect]
     Active Substance: FLUOROURACIL
     Indication: METASTASES TO PERITONEUM
     Dosage: UNK
     Route: 065

REACTIONS (16)
  - Thrombocytopenia [Unknown]
  - Leukopenia [Unknown]
  - Intra-abdominal haemorrhage [Unknown]
  - Postoperative ileus [Unknown]
  - Post procedural fever [Unknown]
  - Rash [Unknown]
  - Postoperative wound complication [Unknown]
  - Respiratory failure [Unknown]
  - Drug ineffective [Unknown]
  - Febrile neutropenia [Unknown]
  - Post procedural sepsis [Unknown]
  - Anaemia [Unknown]
  - Necrotising colitis [Unknown]
  - Neutropenia [Fatal]
  - Intestinal perforation [Unknown]
  - Procedural shock [Unknown]
